FAERS Safety Report 14970308 (Version 2)
Quarter: 2019Q3

REPORT INFORMATION
  Report Type: Report from Study
  Country: DE (occurrence: DE)
  Receive Date: 20180604
  Receipt Date: 20190812
  Transmission Date: 20191004
  Serious: Yes (Hospitalization)
  Sender: FDA-Public Use
  Company Number: DE-MYLANLABS-2018M1036201

PATIENT
  Age: 60 Year
  Sex: Female

DRUGS (7)
  1. XELJANZ [Concomitant]
     Active Substance: TOFACITINIB CITRATE
     Indication: RHEUMATOID ARTHRITIS
     Dosage: 5 MILLIGRAM
     Route: 065
     Dates: start: 201711, end: 201803
  2. METHOTREXATE. [Suspect]
     Active Substance: METHOTREXATE
     Indication: RHEUMATOID ARTHRITIS
     Dosage: 7.5 MILLIGRAM
     Route: 065
  3. TOCILIZUMAB. [Suspect]
     Active Substance: TOCILIZUMAB
     Dosage: 162 MG, UNK
     Route: 065
     Dates: start: 201701, end: 201711
  4. METHOTREXATE. [Suspect]
     Active Substance: METHOTREXATE
     Dosage: 15 MILLIGRAM
     Route: 065
  5. TOCILIZUMAB. [Suspect]
     Active Substance: TOCILIZUMAB
     Indication: RHEUMATOID ARTHRITIS
     Dosage: 162 MG, UNK
     Route: 058
  6. HYDROXYCHLOROQUINE [Concomitant]
     Active Substance: HYDROXYCHLOROQUINE
     Indication: RHEUMATOID ARTHRITIS
     Dosage: 200 MILLIGRAM
     Route: 065
  7. METHOTREXATE. [Suspect]
     Active Substance: METHOTREXATE
     Dosage: 12.5 MILLIGRAM
     Route: 065

REACTIONS (4)
  - Syncope [Unknown]
  - Transaminases increased [Unknown]
  - Phlebitis [Unknown]
  - Rheumatoid arthritis [Unknown]

NARRATIVE: CASE EVENT DATE: 20170515
